FAERS Safety Report 10395382 (Version 1)
Quarter: 2014Q1

REPORT INFORMATION
  Report Type: Spontaneous
  Country: US (occurrence: None)
  Receive Date: 20130606
  Receipt Date: 20130606
  Transmission Date: 20141002
  Serious: Yes (Hospitalization)
  Sender: FDA-Public Use
  Company Number: 2012PROUSA00911

PATIENT
  Age: 75 Year
  Sex: Male
  Weight: 37 kg

DRUGS (13)
  1. PROVENGE (SIPULEUCEL-T) SUSPENSION, 250ML [Suspect]
     Indication: PROSTATE CANCER METASTATIC
     Route: 042
     Dates: start: 20111125, end: 20111125
  2. DILAUDID (HYDROMORPHONE HYDROCHLORIDE) [Concomitant]
  3. FENTANYL (FENTANYL CITRATE) [Concomitant]
  4. ATIVAN (LORAZEPAM) [Concomitant]
  5. DEXAMETHASONE [Concomitant]
  6. ABIRATERONE [Concomitant]
  7. ZOMETA (ZOLEDRONIC ACID) [Concomitant]
  8. ZOLADEX (GOSERLIN ACETATE) [Concomitant]
  9. COLACE (DOCUSATE SODIUM) [Concomitant]
  10. PROTONIX (PANTOPRAZOLE SODIUM SESQUIHYDRATE) [Concomitant]
  11. SENOKOT (SENNA ALEXANDRINA) [Concomitant]
  12. LOVENOX (ENOXAPARIN SODIUM) [Concomitant]
  13. GLYCOLAX (MACROGOL) [Concomitant]

REACTIONS (2)
  - Pain [None]
  - Disease progression [None]
